FAERS Safety Report 5850112-0 (Version None)
Quarter: 2008Q3

REPORT INFORMATION
  Report Type: 
  Country: None (occurrence: None)
  Receive Date: 20080819
  Receipt Date: 20080812
  Transmission Date: 20090109
  Serious: Yes (Death)
  Sender: FDA-Public Use
  Company Number: TW-BOEHRINGER INGELHEIM GMBH, GERMANY-2008-DE-04784GD

PATIENT
  Age: 59 Year
  Sex: Female

DRUGS (3)
  1. PRAMIPEXOLE DIHYDROCHLORIDE [Suspect]
     Indication: PARKINSONIAN REST TREMOR
  2. AMANTADINE HCL [Suspect]
     Indication: PARKINSONIAN REST TREMOR
  3. PROPRANOLOL [Concomitant]

REACTIONS (15)
  - ANAEMIA [None]
  - AREFLEXIA [None]
  - ARRHYTHMIA [None]
  - ATAXIA [None]
  - BLOOD CREATININE INCREASED [None]
  - CONFUSIONAL STATE [None]
  - DRUG INTERACTION [None]
  - DRUG TOXICITY [None]
  - HYPERTENSION [None]
  - INSOMNIA [None]
  - MALAISE [None]
  - MYOCLONUS [None]
  - SUDDEN DEATH [None]
  - TOXIC ENCEPHALOPATHY [None]
  - TREMOR [None]
